FAERS Safety Report 16258225 (Version 3)
Quarter: 2019Q4

REPORT INFORMATION
  Report Type: Spontaneous
  Country: US (occurrence: US)
  Receive Date: 20190430
  Receipt Date: 20191028
  Transmission Date: 20200122
  Serious: Yes (Other)
  Sender: FDA-Public Use
  Company Number: US-ASTRAZENECA-2019SE11018

PATIENT
  Age: 19663 Day
  Sex: Female

DRUGS (18)
  1. NEXIUM [Suspect]
     Active Substance: ESOMEPRAZOLE MAGNESIUM
     Dosage: DELAYED RELEASE CAPSULE
     Route: 048
  2. NEXIUM 24HR [Suspect]
     Active Substance: ESOMEPRAZOLE MAGNESIUM
     Route: 048
  3. NEXIUM [Suspect]
     Active Substance: ESOMEPRAZOLE MAGNESIUM
     Route: 048
  4. LEVOTHYROXINE. [Concomitant]
     Active Substance: LEVOTHYROXINE
  5. NYSTATIN. [Concomitant]
     Active Substance: NYSTATIN
  6. SELENIUM SULFIDE. [Concomitant]
     Active Substance: SELENIUM SULFIDE
  7. FLUTICASONE. [Concomitant]
     Active Substance: FLUTICASONE
  8. ATORVASTATIN [Concomitant]
     Active Substance: ATORVASTATIN
  9. PHENOBARBITAL. [Concomitant]
     Active Substance: PHENOBARBITAL
  10. PHENYTOIN. [Concomitant]
     Active Substance: PHENYTOIN
  11. AMLODIPINE [Concomitant]
     Active Substance: AMLODIPINE BESYLATE
  12. CETRIZINE [Concomitant]
     Active Substance: CETIRIZINE HYDROCHLORIDE
  13. CHOLECALCIFEROL [Concomitant]
     Active Substance: CHOLECALCIFEROL
  14. LOSARTAN. [Concomitant]
     Active Substance: LOSARTAN
  15. CALCIUM ACETATE. [Concomitant]
     Active Substance: CALCIUM ACETATE
  16. MULTIVITAMIN [Concomitant]
     Active Substance: VITAMINS
  17. BENZONATATE. [Concomitant]
     Active Substance: BENZONATATE
  18. DOCUSATE [Concomitant]
     Active Substance: DOCUSATE

REACTIONS (6)
  - Chronic kidney disease [Unknown]
  - End stage renal disease [Unknown]
  - Nephrogenic anaemia [Unknown]
  - Rebound acid hypersecretion [Unknown]
  - Renal failure [Unknown]
  - Renal injury [Unknown]

NARRATIVE: CASE EVENT DATE: 20170210
